FAERS Safety Report 9045725 (Version 1)
Quarter: 2013Q1

REPORT INFORMATION
  Report Type: Report from Study
  Country: US (occurrence: US)
  Receive Date: 20130131
  Receipt Date: 20130131
  Transmission Date: 20140127
  Serious: No
  Sender: FDA-Public Use
  Company Number: US-ABBOTT-12P-163-1013531-00

PATIENT
  Age: 85 Year
  Sex: Female

DRUGS (19)
  1. HUMIRA [Suspect]
     Indication: RHEUMATOID ARTHRITIS
     Dates: start: 20120605
  2. GLIPIZIDE [Suspect]
     Indication: PRODUCT USED FOR UNKNOWN INDICATION
  3. CITALOPRAM [Concomitant]
     Indication: DEPRESSION
  4. PHENYTOIN [Concomitant]
     Indication: CONVULSION
     Dosage: 1 CAP IN THE MORNING AND 2 CAPS IN THE AFTERNOON
  5. SIMVASTATIN [Concomitant]
     Indication: BLOOD CHOLESTEROL
  6. WARFARIN [Concomitant]
     Indication: ANTICOAGULANT THERAPY
  7. ONDANSETRON [Concomitant]
     Indication: NAUSEA
     Dosage: AS NEEDED
  8. RANITIDINE [Concomitant]
     Indication: GASTROOESOPHAGEAL REFLUX DISEASE
  9. TRICOR [Concomitant]
     Indication: BLOOD CHOLESTEROL
  10. MULTAQ [Concomitant]
     Indication: ATRIAL FIBRILLATION
  11. I-CAPS [Concomitant]
     Indication: MACULAR DEGENERATION
  12. ALPRAZOLAM [Concomitant]
     Indication: ANXIETY
  13. FOLIC ACID [Concomitant]
     Indication: PRODUCT USED FOR UNKNOWN INDICATION
  14. MIRTAZAPINE [Concomitant]
     Indication: DEPRESSION
  15. THYROXINE [Concomitant]
     Indication: THYROID DISORDER
  16. NEXIUM [Concomitant]
     Indication: GASTROOESOPHAGEAL REFLUX DISEASE
  17. PROBIOTICS [Concomitant]
     Indication: PRODUCT USED FOR UNKNOWN INDICATION
     Dosage: DAILY
  18. METHOTREXATE [Concomitant]
     Indication: RHEUMATOID ARTHRITIS
     Dosage: 4 TABS WEEKLY
  19. JANUVIA [Concomitant]
     Indication: DIABETES MELLITUS

REACTIONS (7)
  - Blood glucose decreased [Unknown]
  - Nausea [Recovering/Resolving]
  - Diarrhoea [Recovering/Resolving]
  - Abdominal pain [Recovering/Resolving]
  - Influenza [Recovering/Resolving]
  - Diverticulitis [Recovering/Resolving]
  - Viral infection [Recovering/Resolving]
